FAERS Safety Report 10957036 (Version 2)
Quarter: 2015Q2

REPORT INFORMATION
  Report Type: Spontaneous
  Country: US (occurrence: US)
  Receive Date: 20150326
  Receipt Date: 20150603
  Transmission Date: 20150821
  Serious: No
  Sender: FDA-Public Use
  Company Number: US-PFIZER INC-2015102790

PATIENT
  Age: 10 Year
  Sex: Female
  Weight: 61 kg

DRUGS (1)
  1. GENOTROPIN [Suspect]
     Active Substance: SOMATROPIN
     Indication: GROWTH HORMONE DEFICIENCY
     Dosage: 3 MG, 1X/DAY

REACTIONS (3)
  - Injection site swelling [Recovered/Resolved]
  - Skin reaction [Unknown]
  - Injection site pain [Recovered/Resolved]
